FAERS Safety Report 9140514 (Version 1)
Quarter: 2013Q1

REPORT INFORMATION
  Report Type: Spontaneous
  Country: US (occurrence: US)
  Receive Date: 20130305
  Receipt Date: 20130305
  Transmission Date: 20140127
  Serious: No
  Sender: FDA-Public Use
  Company Number: US-MYLANLABS-2013S1001751

PATIENT
  Sex: Female

DRUGS (2)
  1. TIZANIDINE HYDROCHLORIDE [Suspect]
  2. CLONIDINE HYDROCHLORIDE [Suspect]

REACTIONS (2)
  - Hyperhidrosis [Not Recovered/Not Resolved]
  - Cold sweat [Not Recovered/Not Resolved]
